FAERS Safety Report 8376847-6 (Version None)
Quarter: 2012Q2

REPORT INFORMATION
  Report Type: 
  Country: None (occurrence: None)
  Receive Date: 20120522
  Receipt Date: 20120509
  Transmission Date: 20120825
  Serious: Yes (Other)
  Sender: FDA-Public Use
  Company Number: US-JNJFOC-20120510561

PATIENT
  Sex: Female

DRUGS (5)
  1. HUMIRA [Suspect]
     Indication: RHEUMATOID ARTHRITIS
     Dates: start: 20100101, end: 20111101
  2. FOLIC ACID [Concomitant]
  3. METHOTREXATE [Concomitant]
  4. REMICADE [Suspect]
     Indication: RHEUMATOID ARTHRITIS
     Route: 042
     Dates: start: 20040101, end: 20080101
  5. PREDNISONE TAB [Concomitant]
     Dates: start: 20100101

REACTIONS (8)
  - GASTROINTESTINAL DISORDER [None]
  - INFUSION RELATED REACTION [None]
  - BLADDER CANCER [None]
  - ANAPHYLACTIC REACTION [None]
  - VISUAL IMPAIRMENT [None]
  - WEIGHT INCREASED [None]
  - SKIN DISORDER [None]
  - TENDON RUPTURE [None]
